FAERS Safety Report 5874191-X (Version None)
Quarter: 2008Q3

REPORT INFORMATION
  Report Type: 
  Country: None (occurrence: None)
  Receive Date: 20080903
  Receipt Date: 20080818
  Transmission Date: 20090109
  Serious: Yes (Life-Threatening, Other)
  Sender: FDA-Public Use
  Company Number: 000#8#2008-00157

PATIENT
  Age: 63 Year
  Sex: Male

DRUGS (6)
  1. NITROGLYCERIN [Suspect]
     Indication: ARTERIOSPASM CORONARY
     Dosage: .4 MG INTRACORONARY, .996 MG/H INTRAVENOUS DRIP
  2. DOBUTAMINE (DOBUTAMINE) [Suspect]
     Indication: HYPOTENSION
     Dosage: 2500 NG/KG/MIN INTRAVENOUS DRIP
     Route: 041
  3. MOLSIDOMINE (MOLSIDOMINE) [Concomitant]
  4. BISOPROLOL FUMARATE [Concomitant]
  5. ISOSORBIDE MONOITRATE (DOSE UNKNOWN), UNKNOWN (ISOSORBIDE MONONITRATE) [Concomitant]
  6. SIMVASTATIN [Concomitant]

REACTIONS (2)
  - HYPOTENSION [None]
  - VENTRICULAR FIBRILLATION [None]
